FAERS Safety Report 5960901-X (Version None)
Quarter: 2008Q4

REPORT INFORMATION
  Report Type: 
  Country: None (occurrence: None)
  Receive Date: 20081121
  Receipt Date: 20081111
  Transmission Date: 20090506
  Serious: Yes (Other)
  Sender: FDA-Public Use
  Company Number: BR-JNJFOC-20081103072

PATIENT
  Sex: Female

DRUGS (2)
  1. TYLENOL [Suspect]
     Indication: DRUG USE FOR UNKNOWN INDICATION
     Route: 048
  2. LEVOFLOXACIN [Interacting]
     Indication: DRUG USE FOR UNKNOWN INDICATION

REACTIONS (4)
  - DRUG INTERACTION [None]
  - FACIAL PARESIS [None]
  - LISTLESS [None]
  - SPEECH DISORDER [None]
